FAERS Safety Report 7722153-X (Version None)
Quarter: 2011Q3

REPORT INFORMATION
  Report Type: 
  Country: None (occurrence: None)
  Receive Date: 20110831
  Receipt Date: 20110824
  Transmission Date: 20111222
  Serious: Yes (Hospitalization)
  Sender: FDA-Public Use
  Company Number: FR-BAYER-2011-077553

PATIENT
  Age: 35 Year
  Sex: Female
  Weight: 45 kg

DRUGS (1)
  1. ESTRADIOL VALERATE/DIENOGEST [Suspect]
     Dosage: UNK
     Route: 048
     Dates: start: 20100801, end: 20110801

REACTIONS (5)
  - METABOLIC ACIDOSIS [None]
  - HYPOCHLORAEMIA [None]
  - HYPONATRAEMIA [None]
  - DIARRHOEA [None]
  - BLOOD CORTISOL DECREASED [None]
